FAERS Safety Report 10461887 (Version 1)
Quarter: 2014Q3

REPORT INFORMATION
  Report Type: Spontaneous
  Country: US (occurrence: None)
  Receive Date: 20140916
  Receipt Date: 20140916
  Transmission Date: 20150326
  Serious: Yes (Hospitalization, Other)
  Sender: FDA-Public Use
  Company Number: 2009S1006467

PATIENT
  Age: 69 Year
  Sex: Female
  Weight: 60 kg

DRUGS (5)
  1. CELEBREX (CELECOXIIB) [Concomitant]
  2. ACIPHEX [Concomitant]
     Active Substance: RABEPRAZOLE SODIUM
  3. PHOSPHO-SODA [Suspect]
     Active Substance: SODIUM PHOSPHATE, DIBASIC\SODIUM PHOSPHATE, MONOBASIC
     Indication: COLONOSCOPY
     Route: 048
     Dates: start: 20081123
  4. XANAX [Concomitant]
     Active Substance: ALPRAZOLAM
  5. ZESTRIL (LISINOPRIL) [Concomitant]

REACTIONS (11)
  - Nausea [None]
  - Fatigue [None]
  - Hypovolaemia [None]
  - Abdominal pain [None]
  - Epigastric discomfort [None]
  - Renal failure acute [None]
  - Metabolic acidosis [None]
  - Headache [None]
  - Orthopnoea [None]
  - Acute phosphate nephropathy [None]
  - Anxiety [None]

NARRATIVE: CASE EVENT DATE: 20081124
